FAERS Safety Report 15567281 (Version 1)
Quarter: 2018Q4

REPORT INFORMATION
  Report Type: Spontaneous
  Country: DE (occurrence: DE)
  Receive Date: 20181030
  Receipt Date: 20181030
  Transmission Date: 20190205
  Serious: Yes (Other)
  Sender: FDA-Public Use
  Company Number: DE-B.I. PHARMACEUTICALS,INC./RIDGEFIELD-2018-BI-052512

PATIENT
  Age: 53 Year
  Sex: Female

DRUGS (3)
  1. GILOTRIF [Suspect]
     Active Substance: AFATINIB
     Indication: EGFR GENE MUTATION
     Route: 065
  2. GILOTRIF [Suspect]
     Active Substance: AFATINIB
     Indication: NON-SMALL CELL LUNG CANCER
     Route: 065
  3. GILOTRIF [Suspect]
     Active Substance: AFATINIB
     Indication: GENE MUTATION

REACTIONS (4)
  - Pulmonary embolism [Unknown]
  - Nausea [Unknown]
  - Metastases to liver [Recovered/Resolved]
  - Diarrhoea [Unknown]
